FAERS Safety Report 6298048-8 (Version None)
Quarter: 2009Q3

REPORT INFORMATION
  Report Type: 
  Country: None (occurrence: None)
  Receive Date: 20090805
  Receipt Date: 20090729
  Transmission Date: 20100115
  Serious: Yes (Other)
  Sender: FDA-Public Use
  Company Number: US-BAYER-200912526BCC

PATIENT
  Age: 71 Year
  Sex: Female
  Weight: 76 kg

DRUGS (1)
  1. ASPIRIN [Suspect]
     Indication: ISCHAEMIC HEART DISEASE PROPHYLAXIS
     Dosage: TOTAL DAILY DOSE: 325 MG  UNIT DOSE: 325 MG
     Route: 048
     Dates: start: 20070101, end: 20090201

REACTIONS (2)
  - ANASTOMOTIC ULCER HAEMORRHAGE [None]
  - HAEMATOCHEZIA [None]
